FAERS Safety Report 8170039-1 (Version None)
Quarter: 2012Q1

REPORT INFORMATION
  Report Type: 
  Country: None (occurrence: None)
  Receive Date: 20120110
  Receipt Date: 20111116
  Transmission Date: 20120608
  Serious: Yes (Other)
  Sender: FDA-Public Use
  Company Number: M-11-025

PATIENT
  Age: 60 Year
  Sex: Female

DRUGS (2)
  1. ADAPALENE [Concomitant]
  2. BACLOFEN [Suspect]
     Dosage: ORAL (047)

REACTIONS (9)
  - DIZZINESS [None]
  - VOMITING [None]
  - MOBILITY DECREASED [None]
  - MULTIPLE SCLEROSIS [None]
  - EYE PAIN [None]
  - BLADDER SPASM [None]
  - NAUSEA [None]
  - CONDITION AGGRAVATED [None]
  - ABDOMINAL DISCOMFORT [None]
